FAERS Safety Report 5060698-4 (Version None)
Quarter: 2006Q3

REPORT INFORMATION
  Report Type: 
  Country: None (occurrence: None)
  Receive Date: 20060720
  Receipt Date: 20060711
  Transmission Date: 20061208
  Serious: Yes (Other)
  Sender: FDA-Public Use
  Company Number: 2006087101

PATIENT
  Age: 61 Year
  Sex: Female
  Weight: 90.7194 kg

DRUGS (7)
  1. LYRICA [Suspect]
     Indication: DIABETIC NEUROPATHY
     Dosage: 75 MG (75 MG, 1 IN 1 D) ORAL
     Route: 048
     Dates: start: 20060710, end: 20060711
  2. ALTACE [Concomitant]
  3. COUMADIN [Concomitant]
  4. LORTAB [Concomitant]
  5. INSULIN [Concomitant]
  6. AMBIEN [Concomitant]
  7. NITRO PATCH (GLYCERYL TRINITRATE) [Concomitant]

REACTIONS (11)
  - ARTHRALGIA [None]
  - CHEST PAIN [None]
  - FEAR [None]
  - GAIT DISTURBANCE [None]
  - INSOMNIA [None]
  - MONOPLEGIA [None]
  - MUSCLE SPASMS [None]
  - NAUSEA [None]
  - OSTEONECROSIS [None]
  - VISION BLURRED [None]
  - VOMITING [None]
